FAERS Safety Report 4629525-0 (Version None)
Quarter: 2005Q2

REPORT INFORMATION
  Report Type: 
  Country: None (occurrence: None)
  Receive Date: 20050405
  Receipt Date: 20050329
  Transmission Date: 20051028
  Serious: Yes (Hospitalization, Other)
  Sender: FDA-Public Use
  Company Number: 200510624BCC

PATIENT
  Age: 84 Year
  Sex: Male
  Weight: 64.4108 kg

DRUGS (3)
  1. ASPIRIN [Suspect]
     Indication: MYOCARDIAL INFARCTION
     Dosage: 325 MG, QOD, ORAL
     Route: 048
     Dates: start: 19990101
  2. ASPIRIN [Suspect]
     Indication: PROPHYLAXIS
     Dosage: 325 MG, QOD, ORAL
     Route: 048
     Dates: start: 19990101
  3. ALEVE [Suspect]
     Dosage: PRN

REACTIONS (8)
  - ASTHENIA [None]
  - BLOOD DISORDER [None]
  - DIARRHOEA [None]
  - DIFFICULTY IN WALKING [None]
  - FOREIGN BODY TRAUMA [None]
  - GASTRIC INFECTION [None]
  - GASTRIC PERFORATION [None]
  - GASTROINTESTINAL HAEMORRHAGE [None]
